FAERS Safety Report 4544428-8 (Version None)
Quarter: 2005Q1

REPORT INFORMATION
  Report Type: 
  Country: None (occurrence: None)
  Receive Date: 20050105
  Receipt Date: 20041227
  Transmission Date: 20050727
  Serious: Yes (Hospitalization, Other)
  Sender: FDA-Public Use
  Company Number: US-JNJFOC-20040809007

PATIENT
  Sex: Male
  Weight: 73.94 kg

DRUGS (6)
  1. REMICADE [Suspect]
     Indication: CROHN'S DISEASE
     Route: 042
  2. PREVACID [Concomitant]
  3. IMURAN [Concomitant]
  4. VITAMIN C [Concomitant]
  5. FOLIC ACID [Concomitant]
  6. POTASSIUM [Concomitant]

REACTIONS (2)
  - ANAEMIA [None]
  - LEUKOPENIA [None]
